FAERS Safety Report 19275903 (Version 1)
Quarter: 2021Q2

REPORT INFORMATION
  Report Type: Spontaneous
  Country: US (occurrence: US)
  Receive Date: 20210519
  Receipt Date: 20210519
  Transmission Date: 20210717
  Serious: No
  Sender: FDA-Public Use
  Company Number: US-BAYER-2021-143671

PATIENT
  Age: 12 Year
  Sex: Female

DRUGS (1)
  1. ESTRADIOL. [Suspect]
     Active Substance: ESTRADIOL
     Indication: DELAYED PUBERTY
     Route: 062

REACTIONS (3)
  - Therapeutic product effective for unapproved indication [None]
  - Device use issue [None]
  - Off label use of device [None]
